FAERS Safety Report 4683805-1 (Version None)
Quarter: 2005Q2

REPORT INFORMATION
  Report Type: 
  Country: None (occurrence: None)
  Receive Date: 20050602
  Receipt Date: 20050127
  Transmission Date: 20051028
  Serious: No
  Sender: FDA-Public Use
  Company Number: USA050189281

PATIENT
  Age: 33 Year
  Sex: Male
  Weight: 95 kg

DRUGS (12)
  1. CYMBALTA [Suspect]
     Indication: DEPRESSION
     Dosage: 60 MG DAY
     Dates: start: 20050120
  2. PROZAC [Suspect]
     Indication: DEPRESSION
     Dosage: 20 MG/3 DAY
  3. OXYCONTIN [Concomitant]
  4. HYDROCODONE BITARTRATE [Concomitant]
  5. ALPRAZOLAM [Concomitant]
  6. SEROQUEL [Concomitant]
  7. NEURONTIN (GABAPENTIN PFIZER) [Concomitant]
  8. REMERON (MIRTAZAPINE ORIFARM) [Concomitant]
  9. COZAAR [Concomitant]
  10. ULTRAM [Concomitant]
  11. HIV MEDICATIONS [Concomitant]
  12. ZYPREXA [Suspect]
     Dates: start: 20010101

REACTIONS (4)
  - AMNESIA [None]
  - DRUG INEFFECTIVE [None]
  - ENERGY INCREASED [None]
  - RESTLESS LEGS SYNDROME [None]
